FAERS Safety Report 7006684-6 (Version None)
Quarter: 2010Q3

REPORT INFORMATION
  Report Type: 
  Country: None (occurrence: None)
  Receive Date: 20100921
  Receipt Date: 20100903
  Transmission Date: 20110219
  Serious: Yes (Hospitalization)
  Sender: FDA-Public Use
  Company Number: PHHY2010FR13228

PATIENT
  Sex: Male
  Weight: 100 kg

DRUGS (14)
  1. TASIGNA [Suspect]
     Indication: CHRONIC MYELOID LEUKAEMIA
     Dosage: 400 MG, BID
     Dates: start: 20080422, end: 20100209
  2. MERCURY [Suspect]
  3. SOLVENTS AND DILUT. AGENTS,INCL IRRIGAT SOLUT [Suspect]
  4. BYETTA [Concomitant]
     Dosage: 10 UG, BID
  5. DILTIAZEM [Concomitant]
  6. TAREG [Concomitant]
     Dosage: 1 DF, QD
  7. BISOPROLOL FUMARATE [Concomitant]
     Dosage: 0.5 DF, QD
  8. KARDEGIC [Concomitant]
     Dosage: 160 MG DAILY
  9. DIAMICRON [Concomitant]
     Dosage: 30 MG, QD
  10. GLUCOPHAGE [Concomitant]
     Dosage: 1000 MG, BID
  11. ESIDRIX [Concomitant]
     Dosage: 25 MG, QD
  12. ENALAPRIL [Concomitant]
     Dosage: 20 MG, QD
  13. SIMVASTATIN [Concomitant]
     Dosage: 20 MG, QD
  14. LASIX [Concomitant]
     Dosage: 40 MG, QD

REACTIONS (3)
  - DRUG RESISTANCE [None]
  - NEOPLASM MALIGNANT [None]
  - RENAL CANCER [None]
